FAERS Safety Report 7101782-0 (Version None)
Quarter: 2010Q4

REPORT INFORMATION
  Report Type: 
  Country: None (occurrence: None)
  Receive Date: 20101115
  Receipt Date: 20101109
  Transmission Date: 20110411
  Serious: Yes (Death, Hospitalization, Other)
  Sender: FDA-Public Use
  Company Number: US-NOVOPROD-318103

PATIENT
  Sex: Male
  Weight: 68.027 kg

DRUGS (7)
  1. NOVOLOG [Suspect]
     Indication: TYPE 2 DIABETES MELLITUS
     Dosage: UNK
     Route: 058
  2. LANTUS                             /01483501/ [Concomitant]
     Indication: TYPE 2 DIABETES MELLITUS
  3. LISINOPRIL [Concomitant]
     Indication: HYPERTENSION
  4. PRAVASTATIN [Concomitant]
  5. FINASTERIDE [Concomitant]
  6. LOVASTATIN [Concomitant]
     Indication: BLOOD CHOLESTEROL INCREASED
  7. AMLODIPINE [Concomitant]
     Indication: HYPERTENSION

REACTIONS (10)
  - ASTHENIA [None]
  - BLOOD GLUCOSE INCREASED [None]
  - DIZZINESS [None]
  - HEAD INJURY [None]
  - INJURY [None]
  - LUNG INFECTION [None]
  - NECK INJURY [None]
  - ROAD TRAFFIC ACCIDENT [None]
  - TRAUMATIC LUNG INJURY [None]
  - VISION BLURRED [None]
